FAERS Safety Report 7523653-8 (Version None)
Quarter: 2011Q2

REPORT INFORMATION
  Report Type: 
  Country: None (occurrence: None)
  Receive Date: 20110603
  Receipt Date: 20110523
  Transmission Date: 20111010
  Serious: Yes (Other)
  Sender: FDA-Public Use
  Company Number: IN-ROCHE-779036

PATIENT
  Age: 38 Year
  Sex: Female

DRUGS (3)
  1. TRETINOIN [Suspect]
     Dosage: RESTARTED AFTER ONE WEEK
     Route: 065
  2. DAUNORUBICIN HCL [Concomitant]
     Dosage: FOR THREE DAYS
  3. TRETINOIN [Suspect]
     Dosage: FREQUENCY: TWO DIVIDED DOSE, THERAPY WITHHELD
     Route: 065

REACTIONS (2)
  - ILEAL ULCER [None]
  - GASTROINTESTINAL HAEMORRHAGE [None]
